FAERS Safety Report 9454672 (Version 1)
Quarter: 2013Q3

REPORT INFORMATION
  Report Type: Spontaneous
  Country: DE (occurrence: DE)
  Receive Date: 20130812
  Receipt Date: 20130812
  Transmission Date: 20140515
  Serious: Yes (Disabling, Other)
  Sender: FDA-Public Use
  Company Number: GXKR2013DE002635

PATIENT
  Sex: Male
  Weight: 60 kg

DRUGS (1)
  1. DORZOLAMIDE [Suspect]
     Indication: GLAUCOMA
     Dosage: UNK UNK, TID
     Route: 047
     Dates: start: 2011

REACTIONS (1)
  - Polyneuropathy [Not Recovered/Not Resolved]
